FAERS Safety Report 11394107 (Version 1)
Quarter: 2015Q3

REPORT INFORMATION
  Report Type: Spontaneous
  Country: US (occurrence: None)
  Receive Date: 20150817
  Receipt Date: 20150817
  Transmission Date: 20151125
  Serious: Yes (Other)
  Sender: FDA-Public Use
  Company Number: None

PATIENT
  Age: 59 Year
  Sex: Female
  Weight: 71.22 kg

DRUGS (7)
  1. FIBER [Concomitant]
     Active Substance: PSYLLIUM HUSK
  2. LAMICTAL [Suspect]
     Active Substance: LAMOTRIGINE
     Indication: BIPOLAR I DISORDER
     Route: 048
  3. LEVOXYL [Concomitant]
     Active Substance: LEVOTHYROXINE SODIUM
  4. LEXAPRO [Concomitant]
     Active Substance: ESCITALOPRAM OXALATE
  5. GLUCOSAMINE [Concomitant]
     Active Substance: GLUCOSAMINE
  6. CHONDRITIN [Concomitant]
  7. STOOL SOFTENER [Concomitant]
     Active Substance: DOCUSATE CALCIUM

REACTIONS (1)
  - Deafness [None]

NARRATIVE: CASE EVENT DATE: 20150813
